FAERS Safety Report 9039947 (Version 1)
Quarter: 2013Q1

REPORT INFORMATION
  Report Type: Spontaneous
  Country: US (occurrence: US)
  Receive Date: 20130130
  Receipt Date: 20130130
  Transmission Date: 20140127
  Serious: No
  Sender: FDA-Public Use
  Company Number: US-BIOGENIDEC-2009BI026784

PATIENT
  Age: 45 None
  Sex: Female

DRUGS (1)
  1. AVONEX [Suspect]
     Indication: MULTIPLE SCLEROSIS
     Route: 030
     Dates: start: 20030228, end: 20090215

REACTIONS (3)
  - Weight decreased [Unknown]
  - Arthralgia [Recovered/Resolved]
  - Influenza like illness [Recovered/Resolved]
